FAERS Safety Report 16826280 (Version 2)
Quarter: 2020Q1

REPORT INFORMATION
  Report Type: Spontaneous
  Country: US (occurrence: US)
  Receive Date: 20190919
  Receipt Date: 20200131
  Transmission Date: 20200409
  Serious: Yes (Hospitalization)
  Sender: FDA-Public Use
  Company Number: US-SUN PHARMACEUTICAL INDUSTRIES LTD-2019R1-220587

PATIENT
  Age: 75 Year
  Sex: Male

DRUGS (3)
  1. AMPICILLIN/SULBACTAM [Concomitant]
     Active Substance: AMPICILLIN SODIUM\SULBACTAM SODIUM
     Indication: SUPERINFECTION BACTERIAL
     Dosage: UNK
     Route: 065
  2. PREDNISONE. [Suspect]
     Active Substance: PREDNISONE
     Indication: DISEASE PROGRESSION
     Dosage: 40 MILLIGRAM
     Route: 065
  3. VANCOMYCIN [Concomitant]
     Active Substance: VANCOMYCIN
     Indication: SUPERINFECTION BACTERIAL
     Dosage: UNK
     Route: 065

REACTIONS (2)
  - Herpes simplex [Unknown]
  - Eczema herpeticum [Unknown]
